FAERS Safety Report 6682753-5 (Version None)
Quarter: 2010Q2

REPORT INFORMATION
  Report Type: 
  Country: None (occurrence: None)
  Receive Date: 20100415
  Receipt Date: 20100406
  Transmission Date: 20101027
  Serious: Yes (Hospitalization)
  Sender: FDA-Public Use
  Company Number: JP-ELI_LILLY_AND_COMPANY-JP201004003359

PATIENT
  Sex: Male
  Weight: 50.1 kg

DRUGS (13)
  1. GEMCITABINE HCL [Suspect]
     Indication: PANCREATIC CARCINOMA NON-RESECTABLE
     Dosage: 1000 MG/M2, UNK
     Route: 042
     Dates: start: 20100224, end: 20100324
  2. GEMCITABINE HCL [Suspect]
     Dosage: 800 MG/M2, OTHER
     Route: 042
  3. TOCILIZUMAB [Suspect]
     Indication: PANCREATIC CARCINOMA NON-RESECTABLE
     Dosage: 8 MG/KG, UNK
     Route: 042
     Dates: start: 20100225
  4. LOXOPROFEN SODIUM [Concomitant]
     Indication: CANCER PAIN
     Dosage: 60 MG, AS NEEDED
     Route: 048
     Dates: start: 20100128
  5. OXYCONTIN [Concomitant]
     Indication: CANCER PAIN
     Dosage: 5 MG, 2/D
     Route: 048
     Dates: start: 20100205
  6. OXYCODONE HCL [Concomitant]
     Indication: CANCER PAIN
     Dosage: 2.5 MG, AS NEEDED
     Route: 048
     Dates: start: 20100205
  7. PURSENNID [Concomitant]
     Indication: CONSTIPATION
     Dosage: 12 MG, AS NEEDED
     Route: 048
     Dates: start: 20100206
  8. LANSOPRAZOLE [Concomitant]
     Indication: PROPHYLAXIS
     Dosage: 15 MG, DAILY (1/D)
     Route: 048
     Dates: start: 20100301
  9. SOLANAX [Concomitant]
     Indication: NAUSEA
     Dosage: 0.4 MG, AS NEEDED
     Route: 048
     Dates: start: 20100308
  10. MAGMITT [Concomitant]
     Indication: CONSTIPATION
     Dosage: 660 MG, 3/D
     Route: 048
     Dates: start: 20100325
  11. PRIMPERAN /00041901/ [Concomitant]
     Indication: NAUSEA
     Dosage: 10 MG, 3/D
     Route: 048
     Dates: start: 20100328, end: 20100328
  12. LAXOBERON [Concomitant]
     Indication: CONSTIPATION
     Dosage: 10 ML, AS NEEDED
     Route: 048
     Dates: start: 20100328
  13. PROCHLORPERAZINE [Concomitant]
     Indication: NAUSEA
     Dosage: 5 MG, AS NEEDED
     Route: 030
     Dates: start: 20100328, end: 20100401

REACTIONS (1)
  - FATIGUE [None]
